FAERS Safety Report 25244699 (Version 1)
Quarter: 2025Q2

REPORT INFORMATION
  Report Type: Spontaneous
  Country: JP (occurrence: JP)
  Receive Date: 20250428
  Receipt Date: 20250428
  Transmission Date: 20250716
  Serious: Yes (Life-Threatening, Hospitalization, Other)
  Sender: BRACCO
  Company Number: JP-BAYER-2025A055919

PATIENT
  Age: 77 Year
  Sex: Male

DRUGS (1)
  1. IOPAMIRON [Suspect]
     Active Substance: IOPAMIDOL
     Indication: Computerised tomogram

REACTIONS (2)
  - Kounis syndrome [Recovered/Resolved]
  - Cardiac arrest [Recovered/Resolved]
